FAERS Safety Report 20755882 (Version 3)
Quarter: 2022Q2

REPORT INFORMATION
  Report Type: Spontaneous
  Country: PH (occurrence: PH)
  Receive Date: 20220427
  Receipt Date: 20220511
  Transmission Date: 20220721
  Serious: Yes (Other)
  Sender: FDA-Public Use
  Company Number: PH-BAUSCH-BL-2022-009745

PATIENT
  Age: 3 Year
  Sex: Female
  Weight: 14 kg

DRUGS (11)
  1. ATROPINE [Suspect]
     Active Substance: ATROPINE
     Indication: Chemical poisoning
     Dosage: DAY 1-12 HOURS, 0.04 MG/KG/DOSE
     Route: 042
  2. ATROPINE [Suspect]
     Active Substance: ATROPINE
     Dosage: 16 HOURS, 0.05 MG/KG/DOSE
     Route: 042
  3. ATROPINE [Suspect]
     Active Substance: ATROPINE
     Dosage: DAY 1-24 HOURS, 0.02 MG/KG/DOSE
     Route: 042
  4. ATROPINE [Suspect]
     Active Substance: ATROPINE
     Dosage: 40 HOURS, 0.015 MG/KG/DOSE, DE-ESCALATED
     Route: 042
  5. ATROPINE [Suspect]
     Active Substance: ATROPINE
     Dosage: DAY 2-48 HOURS, 0.015 MG/KG/DOSE
     Route: 042
  6. CEFTRIAXONE [Concomitant]
     Active Substance: CEFTRIAXONE
     Indication: Pneumonia
     Route: 042
  7. CLINDAMYCIN [Concomitant]
     Active Substance: CLINDAMYCIN
     Indication: Pneumonia
     Route: 042
  8. SODIUM CHLORIDE [Concomitant]
     Active Substance: SODIUM CHLORIDE
     Indication: Chemical poisoning
  9. ACTIVATED CHARCOAL [Concomitant]
     Active Substance: ACTIVATED CHARCOAL
     Indication: Chemical poisoning
  10. POLYETHYLENE GLYCOL [Concomitant]
     Active Substance: POLYETHYLENE GLYCOL
     Indication: Chemical poisoning
  11. SODIUM BICARBONATE [Concomitant]
     Active Substance: SODIUM BICARBONATE
     Indication: Metabolic acidosis
     Route: 042

REACTIONS (3)
  - Seizure [Recovered/Resolved]
  - Agitation [Unknown]
  - Toxicity to various agents [Recovered/Resolved]
